FAERS Safety Report 4555775-8 (Version None)
Quarter: 2005Q1

REPORT INFORMATION
  Report Type: 
  Country: None (occurrence: None)
  Receive Date: 20050112
  Receipt Date: 20040318
  Transmission Date: 20050727
  Serious: Yes (Hospitalization)
  Sender: FDA-Public Use
  Company Number: 205228

PATIENT

DRUGS (1)
  1. ACTIVASE [Suspect]
     Indication: VENA CAVA THROMBOSIS
     Dosage: 0.24 MG, Q1H,
     Route: 042

REACTIONS (1)
  - DRUG INEFFECTIVE [None]
